FAERS Safety Report 20565645 (Version 3)
Quarter: 2022Q3

REPORT INFORMATION
  Report Type: Spontaneous
  Country: JP (occurrence: JP)
  Receive Date: 20220308
  Receipt Date: 20220715
  Transmission Date: 20221027
  Serious: No
  Sender: FDA-Public Use
  Company Number: JP-GLAXOSMITHKLINE-JP2022JPN040597

PATIENT

DRUGS (4)
  1. SOTROVIMAB [Suspect]
     Active Substance: SOTROVIMAB
     Indication: COVID-19
     Dosage: UNK
     Dates: start: 20220301
  2. HEPARIN CALCIUM [Suspect]
     Active Substance: HEPARIN CALCIUM
     Indication: Thrombosis prophylaxis
     Dosage: 10000 UNIT/DAY
     Route: 058
     Dates: start: 20220227, end: 20220306
  3. RITODRINE [Suspect]
     Active Substance: RITODRINE
     Dosage: 20 MG/DAY
     Dates: start: 20220227, end: 20220307
  4. CALONAL [Suspect]
     Active Substance: ACETAMINOPHEN
     Indication: Antipyresis
     Dosage: 400 MG/DAY
     Dates: start: 20220301, end: 20220301

REACTIONS (1)
  - Exposure during pregnancy [Unknown]
